FAERS Safety Report 12504198 (Version 1)
Quarter: 2016Q2

REPORT INFORMATION
  Report Type: Spontaneous
  Country: US (occurrence: US)
  Receive Date: 20160628
  Receipt Date: 20160628
  Transmission Date: 20160815
  Serious: Yes (Hospitalization)
  Sender: FDA-Public Use
  Company Number: US-IPCA LABORATORIES LIMITED-IPC201606-000535

PATIENT
  Age: 67 Year
  Sex: Female

DRUGS (12)
  1. DIGOXIN. [Concomitant]
     Active Substance: DIGOXIN
  2. LOPRESSOR [Concomitant]
     Active Substance: METOPROLOL TARTRATE
  3. DRONEDARONE [Concomitant]
     Active Substance: DRONEDARONE
  4. BUPROPION. [Concomitant]
     Active Substance: BUPROPION
  5. IPRATROPIUM BROMIDE/SALBUTAMOL [Concomitant]
  6. FUROSEMIDE. [Concomitant]
     Active Substance: FUROSEMIDE
  7. DILTIAZEM [Concomitant]
     Active Substance: DILTIAZEM
  8. ARFORMOTEROL [Concomitant]
     Active Substance: ARFORMOTEROL
  9. METOCLOPRAMIDE. [Concomitant]
     Active Substance: METOCLOPRAMIDE
  10. PRAVASTATIN [Concomitant]
     Active Substance: PRAVASTATIN\PRAVASTATIN SODIUM
  11. WARFARIN [Suspect]
     Active Substance: WARFARIN
     Indication: ATRIAL FIBRILLATION
  12. TRIAMCINOLONE-LIDOCAINE SALINE [Concomitant]
     Route: 008

REACTIONS (5)
  - Muscular weakness [Unknown]
  - Lumbar radiculopathy [Recovering/Resolving]
  - Urinary retention [Recovered/Resolved]
  - Spinal epidural haematoma [Recovered/Resolved]
  - Peroneal nerve palsy [Recovering/Resolving]
